FAERS Safety Report 4279210-2 (Version None)
Quarter: 2004Q1

REPORT INFORMATION
  Report Type: 
  Country: None (occurrence: None)
  Receive Date: 20040122
  Receipt Date: 20040108
  Transmission Date: 20041129
  Serious: Yes (Life-Threatening)
  Sender: FDA-Public Use
  Company Number: SYN_0012_2004

PATIENT
  Age: 75 Year

DRUGS (1)
  1. DAPAROX [Suspect]

REACTIONS (5)
  - ABDOMINAL SYMPTOM [None]
  - ERYTHEMA [None]
  - EYELID OEDEMA [None]
  - OEDEMA MOUTH [None]
  - PRURITUS [None]
